FAERS Safety Report 19036663 (Version 2)
Quarter: 2021Q2

REPORT INFORMATION
  Report Type: Spontaneous
  Country: US (occurrence: US)
  Receive Date: 20210322
  Receipt Date: 20210412
  Transmission Date: 20210717
  Serious: Yes (Other)
  Sender: FDA-Public Use
  Company Number: US-DRREDDYS-USA/USA/21/0132917

PATIENT
  Age: 17 Year
  Sex: Female

DRUGS (1)
  1. ZENATANE [Suspect]
     Active Substance: ISOTRETINOIN
     Indication: PRODUCT USED FOR UNKNOWN INDICATION
     Dosage: RMA ISSUE DATE:12/30/2020 3:37:12 PM, 2/1/2021 6:37:23 PM
     Route: 048
     Dates: start: 20201228, end: 20210226

REACTIONS (3)
  - Abortion induced [Unknown]
  - Exposure during pregnancy [Unknown]
  - Treatment noncompliance [Unknown]
